FAERS Safety Report 6541044-3 (Version None)
Quarter: 2010Q1

REPORT INFORMATION
  Report Type: 
  Country: None (occurrence: None)
  Receive Date: 20100118
  Receipt Date: 20100111
  Transmission Date: 20100710
  Serious: Yes (Other)
  Sender: FDA-Public Use
  Company Number: US-JNJFOC-20090705843

PATIENT
  Sex: Female

DRUGS (2)
  1. LEVAQUIN [Suspect]
     Indication: RESPIRATORY TRACT INFECTION
  2. LEVAQUIN [Suspect]
     Indication: SINUSITIS

REACTIONS (3)
  - NERVE COMPRESSION [None]
  - TENDON RUPTURE [None]
  - TENDONITIS [None]
